FAERS Safety Report 5130293-7 (Version None)
Quarter: 2006Q4

REPORT INFORMATION
  Report Type: 
  Country: None (occurrence: None)
  Receive Date: 20061013
  Receipt Date: 20060925
  Transmission Date: 20070319
  Serious: Yes (Hospitalization)
  Sender: FDA-Public Use
  Company Number: US200609006522

PATIENT
  Age: 43 Year
  Sex: Female

DRUGS (6)
  1. CYMBALTA [Suspect]
     Indication: NEUROPATHY
     Dosage: 60 MG, 2/D
  2. SYNTHROID [Concomitant]
  3. TOPAMAX /AUS/ (TOPIRAMATE) [Concomitant]
  4. KLONOPIN [Concomitant]
  5. PREGABALIN (PREGABALIN) [Concomitant]
  6. DARVOCET-N (PROPOXYPHENE NAPSYLATE UNKNOWN FORMULATION) [Concomitant]

REACTIONS (7)
  - BLOOD PRESSURE INCREASED [None]
  - CHEST PAIN [None]
  - MALAISE [None]
  - NAUSEA [None]
  - RETCHING [None]
  - THORACIC OUTLET SYNDROME [None]
  - VOMITING [None]
